FAERS Safety Report 25148773 (Version 3)
Quarter: 2025Q2

REPORT INFORMATION
  Report Type: Spontaneous
  Country: DE (occurrence: DE)
  Receive Date: 20250402
  Receipt Date: 20250425
  Transmission Date: 20250717
  Serious: Yes (Other)
  Sender: ROCHE
  Company Number: DE-ROCHE-10000241735

PATIENT
  Age: 29 Year
  Sex: Female
  Weight: 59.6 kg

DRUGS (4)
  1. OCREVUS [Suspect]
     Active Substance: OCRELIZUMAB
     Indication: Relapsing-remitting multiple sclerosis
     Dosage: LAST DOSE WAS RECEIVED ON 01/APR/2025
     Route: 042
     Dates: start: 20250318
  2. PREDNISOLONE [Concomitant]
     Active Substance: PREDNISOLONE
  3. DIMETHINDENE [Concomitant]
     Active Substance: DIMETHINDENE
  4. METOPROLOL [Concomitant]
     Active Substance: METOPROLOL
     Route: 042

REACTIONS (4)
  - Hypersensitivity [Recovered/Resolved]
  - Urticaria [Recovered/Resolved]
  - Pruritus [Recovered/Resolved]
  - Tachycardia [Recovered/Resolved]

NARRATIVE: CASE EVENT DATE: 20250318
